FAERS Safety Report 23303924 (Version 13)
Quarter: 2025Q1

REPORT INFORMATION
  Report Type: Spontaneous
  Country: US (occurrence: US)
  Receive Date: 20231215
  Receipt Date: 20250328
  Transmission Date: 20250409
  Serious: No
  Sender: PFIZER
  Company Number: US-PFIZER INC-PV202300008953

PATIENT
  Age: 23 Year
  Sex: Female

DRUGS (16)
  1. XELJANZ [Suspect]
     Active Substance: TOFACITINIB CITRATE
     Indication: Rheumatoid arthritis
     Dosage: 15 MG, DAILY (5 MG IN AM + 10 MG IN PM AT DINNER TIME)
     Route: 048
  2. XELJANZ [Suspect]
     Active Substance: TOFACITINIB CITRATE
     Indication: Psoriatic arthropathy
     Dosage: 5 MG, 2X/DAY
     Route: 048
  3. XELJANZ [Suspect]
     Active Substance: TOFACITINIB CITRATE
     Indication: Ankylosing spondylitis
     Dosage: 15 MG, DAILY (ONE TABLET IN THE MORNING AND TWO TABLETS IN THE EVENING)
  4. XELJANZ [Suspect]
     Active Substance: TOFACITINIB CITRATE
     Indication: Alopecia totalis
     Dosage: 5 MG, 1X/DAY
  5. XELJANZ [Suspect]
     Active Substance: TOFACITINIB CITRATE
     Indication: Alopecia areata
     Dosage: 10 MG, 1X/DAY
  6. XELJANZ [Suspect]
     Active Substance: TOFACITINIB CITRATE
     Dosage: 15 MG, DAILY (5 MG IN THE MORNING AND 10 MG AT DINNER TIME)
  7. XELJANZ [Suspect]
     Active Substance: TOFACITINIB CITRATE
     Dosage: 10 MG TO EQUAL 15 MG
  8. XELJANZ [Suspect]
     Active Substance: TOFACITINIB CITRATE
     Dosage: 5 MG TO EQUAL 15 MG
  9. XELJANZ [Suspect]
     Active Substance: TOFACITINIB CITRATE
     Dosage: 5 MG, 3X/DAY
  10. XELJANZ [Suspect]
     Active Substance: TOFACITINIB CITRATE
     Dosage: 15 MG, DAILY (5MG AM/10MG PM)
     Route: 048
     Dates: start: 202402
  11. XELJANZ [Suspect]
     Active Substance: TOFACITINIB CITRATE
  12. XELJANZ [Suspect]
     Active Substance: TOFACITINIB CITRATE
  13. XELJANZ [Suspect]
     Active Substance: TOFACITINIB CITRATE
  14. ALBUTEROL [Concomitant]
     Active Substance: ALBUTEROL
  15. BUSPIRONE [Concomitant]
     Active Substance: BUSPIRONE HYDROCHLORIDE
  16. TRETINOIN [Concomitant]
     Active Substance: TRETINOIN

REACTIONS (4)
  - Drug hypersensitivity [Unknown]
  - Disease progression [Unknown]
  - Off label use [Unknown]
  - Drug effective for unapproved indication [Unknown]
